FAERS Safety Report 9036943 (Version 1)
Quarter: 2013Q1

REPORT INFORMATION
  Report Type: Spontaneous
  Country: PT (occurrence: None)
  Receive Date: 20130111
  Receipt Date: 20130111
  Transmission Date: 20140127
  Serious: Yes (Other)
  Sender: FDA-Public Use
  Company Number: 2013034356

PATIENT
  Age: 69 Year
  Sex: Male

DRUGS (14)
  1. RHOPHYLAC [Suspect]
     Indication: IDIOPATHIC THROMBOCYTOPENIC PURPURA
     Dosage: (NOT OTHERWISE SPECIFIED)
     Route: 042
     Dates: start: 20121106, end: 20121106
  2. BISOPROLOL (BISOPROLOL) [Concomitant]
  3. GLICLAZIDE (GLICLAZIDE) [Concomitant]
  4. METFORMIN (METFORMIN) [Concomitant]
  5. AMLODIPINE BESYLATE (AMLODIPINE BESILATE) [Concomitant]
  6. PERINDOPRIL (PERINDOPRIL) [Concomitant]
  7. INDAPANIDE (INDAPAMIDE) [Concomitant]
  8. ROSUVASTATIN CALCIUM (ROSUVASTATIN CALCIUM) [Concomitant]
  9. CLONAZEPAM (CLONAZEPAM) (CLONAZEPAM) [Concomitant]
  10. INSULIN GLARGINE (INSULIN GLARGINE) [Concomitant]
  11. INSULIN LISPRO (INSULIN LISPRO) [Concomitant]
  12. GINKO BILOBA(GINKGO BILOBA) [Concomitant]
  13. TRIMETAZIDINE DIHYDROCHLORIDE (TRIMETAZIDINE HYDROCHLORIDE) [Concomitant]
  14. TAMSULOSIN (TAMSULOSIN) [Concomitant]

REACTIONS (7)
  - Anaemia [None]
  - Haemolysis [None]
  - Anti-erythrocyte antibody positive [None]
  - Incorrect dose administered [None]
  - Medication error [None]
  - Off label use [None]
  - Rhesus antibodies positive [None]
